FAERS Safety Report 22138676 (Version 1)
Quarter: 2023Q1

REPORT INFORMATION
  Report Type: Spontaneous
  Country: NL (occurrence: NL)
  Receive Date: 20230326
  Receipt Date: 20230326
  Transmission Date: 20230418
  Serious: Yes (Hospitalization, Other)
  Sender: FDA-Public Use
  Company Number: NL-BIOGEN-2023BI01194921

PATIENT
  Age: 29 Year
  Sex: Female

DRUGS (1)
  1. SPINRAZA [Suspect]
     Active Substance: NUSINERSEN
     Indication: Product used for unknown indication
     Route: 050
     Dates: start: 20210127

REACTIONS (5)
  - Post procedural fever [Unknown]
  - Subarachnoid haemorrhage [Unknown]
  - Procedural pain [Unknown]
  - Procedural vomiting [Unknown]
  - Meningitis chemical [Unknown]

NARRATIVE: CASE EVENT DATE: 20230316
